FAERS Safety Report 17015968 (Version 1)
Quarter: 2019Q4

REPORT INFORMATION
  Report Type: Spontaneous
  Country: CA (occurrence: CA)
  Receive Date: 20191111
  Receipt Date: 20191111
  Transmission Date: 20200122
  Serious: Yes (Hospitalization, Other)
  Sender: FDA-Public Use
  Company Number: CA-PFIZER INC-2019484116

PATIENT
  Sex: Female

DRUGS (3)
  1. MORPHINE SULFATE. [Suspect]
     Active Substance: MORPHINE SULFATE
     Dosage: UNK
  2. METHOTREXATE SODIUM. [Suspect]
     Active Substance: METHOTREXATE SODIUM
     Dosage: UNK
  3. FOLIC ACID. [Suspect]
     Active Substance: FOLIC ACID
     Dosage: UNK

REACTIONS (5)
  - Arthralgia [Unknown]
  - Drug hypersensitivity [Unknown]
  - Gait disturbance [Unknown]
  - Impaired quality of life [Unknown]
  - Loss of personal independence in daily activities [Unknown]
